FAERS Safety Report 7247749-3 (Version None)
Quarter: 2011Q1

REPORT INFORMATION
  Report Type: 
  Country: None (occurrence: None)
  Receive Date: 20110127
  Receipt Date: 20110118
  Transmission Date: 20110831
  Serious: Yes (Hospitalization, Other)
  Sender: FDA-Public Use
  Company Number: GB-BAYER-200811981BNE

PATIENT
  Sex: Female
  Weight: 48.9 kg

DRUGS (31)
  1. SORAFENIB (RAF KINASE INHIBITOR) [Suspect]
     Indication: PRODUCT USED FOR UNKNOWN INDICATION
     Dosage: CYCLE 1
     Route: 048
     Dates: start: 20080207, end: 20080306
  2. SORAFENIB (RAF KINASE INHIBITOR) [Suspect]
     Dosage: CYCLE 6 - DOSE STOPPED
     Dates: start: 20080723, end: 20080806
  3. SORAFENIB (RAF KINASE INHIBITOR) [Suspect]
     Dosage: 1600 MG (DAILY DOSE), BID, ORAL
     Route: 048
     Dates: start: 20081030, end: 20081126
  4. SORAFENIB (RAF KINASE INHIBITOR) [Suspect]
     Dosage: CYCLE 12 - DOSE REDUCED
  5. PARACETAMOL [Concomitant]
     Indication: PAIN
     Dosage: 1 G (DAILY DOSE), PRN, ORAL
     Route: 048
     Dates: start: 20080107
  6. E45 [LANOLIN,PARAFFIN, LIQUID,WHITE SOFT PARAFFIN] [Concomitant]
     Indication: RASH
     Dosage: 1 APPLICATION
     Route: 061
     Dates: start: 20080215
  7. CALCICHEW [Concomitant]
     Indication: NAUSEA
     Dosage: 1.25 G (DAILY DOSE), QD, ORAL
     Route: 048
     Dates: start: 20080731, end: 20080806
  8. SORAFENIB (RAF KINASE INHIBITOR) [Suspect]
     Dosage: CYCLE 5 - DOSE INTERRUPTED - 10-JUL-2008 AM DOSE ONLY
     Route: 048
     Dates: start: 20080529, end: 20080610
  9. SORAFENIB (RAF KINASE INHIBITOR) [Suspect]
     Dosage: CYCLE 9
     Route: 048
     Dates: start: 20081002, end: 20081029
  10. SORAFENIB (RAF KINASE INHIBITOR) [Suspect]
     Dosage: CYCLE 4
     Route: 048
     Dates: start: 20080501, end: 20080528
  11. SORAFENIB (RAF KINASE INHIBITOR) [Suspect]
     Dosage: CYCLE 7 - DOSE RESTARTED AM
     Route: 048
     Dates: start: 20080807, end: 20080903
  12. METOCLOPRAMIDE [Concomitant]
     Indication: NAUSEA
     Dosage: 10 MG (DAILY DOSE), PRN, ORAL
     Route: 048
     Dates: start: 20080107, end: 20080207
  13. TINZAPARIN [Concomitant]
     Indication: THROMBOSIS
     Dosage: 9000 MEGA UNITS
     Route: 058
     Dates: start: 20080605
  14. SORAFENIB (RAF KINASE INHIBITOR) [Suspect]
     Dosage: CYCLE 3
     Route: 048
     Dates: start: 20080404, end: 20080430
  15. SORAFENIB (RAF KINASE INHIBITOR) [Suspect]
     Dosage: CYCLE 5 - DOSE RE-STARTED -  12-JUL-2008 PM DOSE ONLY
     Route: 048
     Dates: start: 20080612, end: 20080625
  16. MOTILIUM [Concomitant]
     Indication: NAUSEA
     Dosage: 10 MG (DAILY DOSE), PRN, ORAL
     Route: 048
     Dates: start: 20080207
  17. POLYTAR [Concomitant]
     Indication: RASH
     Dosage: 1 APPLICATION
     Route: 061
     Dates: start: 20080221
  18. OILATUM [PARAFFIN] [Concomitant]
     Indication: RASH
     Dosage: 1 APPLICATION
     Route: 061
     Dates: start: 20080221
  19. MAGNESIUM GLYCEROPHOSPHATE [Concomitant]
     Indication: HYPOMAGNESAEMIA
     Dosage: 2 TABLETS BID
     Route: 048
     Dates: start: 20080731, end: 20080806
  20. DOMPERIDONE [Concomitant]
     Indication: PRODUCT USED FOR UNKNOWN INDICATION
     Dosage: 10 MG (DAILY DOSE), PRN, ORAL
     Route: 048
     Dates: start: 20080207
  21. FLOXACILLIN SODIUM [Concomitant]
     Indication: PRODUCT USED FOR UNKNOWN INDICATION
     Dosage: 750 MG (DAILY DOSE), TID, ORAL
     Route: 048
     Dates: start: 20090119, end: 20090123
  22. SORAFENIB (RAF KINASE INHIBITOR) [Suspect]
     Dosage: CYCLE 2
     Route: 048
     Dates: start: 20080307, end: 20080403
  23. SORAFENIB (RAF KINASE INHIBITOR) [Suspect]
     Dosage: CYCLE 8
     Route: 048
     Dates: start: 20080904, end: 20081001
  24. DIETARY SUPPLEMENT [Concomitant]
     Indication: MEDICAL DIET
     Dosage: 200 ML (DAILY DOSE), PRN, ORAL
     Route: 048
     Dates: start: 20080107
  25. IMODIUM [Concomitant]
     Indication: DIARRHOEA
     Dosage: 2 MG (DAILY DOSE), PRN, ORAL
     Route: 048
     Dates: start: 20080403
  26. BENDROFLUAZIDE [Concomitant]
     Indication: RASH
     Dosage: 2.5 MG (DAILY DOSE), QD, ORAL
     Route: 048
     Dates: start: 20080306
  27. SORAFENIB (RAF KINASE INHIBITOR) [Suspect]
     Dosage: CYCLE 6 - DOSE INTERUPTED - AM ONLY
     Route: 048
     Dates: start: 20080626, end: 20080722
  28. CALOGEN [ARACHIS HYPOGAEA OIL] [Concomitant]
     Indication: MEDICAL DIET
     Dosage: 250 ML (DAILY DOSE), PRN, ORAL
     Route: 048
     Dates: start: 20080107
  29. PIRITON [Concomitant]
     Indication: SKIN IRRITATION
     Dosage: 4 MG (DAILY DOSE), PRN, ORAL
     Route: 048
     Dates: start: 20080216, end: 20080403
  30. AMOXICILLIN [Concomitant]
     Indication: INFECTION
     Dosage: 1500 MG (DAILY DOSE), TID, ORAL
     Route: 048
     Dates: start: 20080225, end: 20080302
  31. AMOXICILLIN [Concomitant]
     Indication: OROPHARYNGEAL PAIN

REACTIONS (7)
  - PALMAR-PLANTAR ERYTHRODYSAESTHESIA SYNDROME [None]
  - HYPOCALCAEMIA [None]
  - DIARRHOEA [None]
  - HYPOPHOSPHATAEMIA [None]
  - HYPOMAGNESAEMIA [None]
  - TETANY [None]
  - PARAESTHESIA [None]
